FAERS Safety Report 7619000-3 (Version None)
Quarter: 2011Q3

REPORT INFORMATION
  Report Type: 
  Country: None (occurrence: None)
  Receive Date: 20110718
  Receipt Date: 20110705
  Transmission Date: 20111222
  Serious: Yes (Other)
  Sender: FDA-Public Use
  Company Number: IT-MYLANLABS-2011S1014151

PATIENT
  Age: 65 Year
  Sex: Female

DRUGS (1)
  1. METAPROTERENOL SULFATE [Suspect]
     Route: 065

REACTIONS (1)
  - STRESS CARDIOMYOPATHY [None]
